FAERS Safety Report 11191757 (Version 1)
Quarter: 2015Q2

REPORT INFORMATION
  Report Type: Spontaneous
  Country: PT (occurrence: None)
  Receive Date: 20150612
  Receipt Date: 20150612
  Transmission Date: 20150821
  Serious: No
  Sender: FDA-Public Use
  Company Number: PT-LHC-2015068

PATIENT
  Age: 75 Year
  Sex: Male

DRUGS (1)
  1. CONOXIA (OXYGEN) (INHALATION GAS) (OXYGEN) (VERUM) [Suspect]
     Active Substance: OXYGEN
     Indication: PRODUCT USED FOR UNKNOWN INDICATION
     Route: 055

REACTIONS (4)
  - Pyrexia [None]
  - Dizziness [None]
  - Chills [None]
  - Wrong drug administered [None]
